FAERS Safety Report 16445078 (Version 1)
Quarter: 2019Q2

REPORT INFORMATION
  Report Type: Spontaneous
  Country: US (occurrence: US)
  Receive Date: 20190618
  Receipt Date: 20190618
  Transmission Date: 20190711
  Serious: Yes (Hospitalization)
  Sender: FDA-Public Use
  Company Number: US-ORPHAN EUROPE-2069314

PATIENT
  Age: 2 Month
  Sex: Male

DRUGS (1)
  1. CARBAGLU [Suspect]
     Active Substance: CARGLUMIC ACID
     Indication: HYPERGLYCINAEMIA

REACTIONS (4)
  - Viral infection [Unknown]
  - Off label use [Unknown]
  - Vomiting [Unknown]
  - Ammonia increased [Unknown]

NARRATIVE: CASE EVENT DATE: 201905
